FAERS Safety Report 13009817 (Version 1)
Quarter: 2016Q4

REPORT INFORMATION
  Report Type: Not Available
  Country: US (occurrence: US)
  Receive Date: 20161208
  Receipt Date: 20161208
  Transmission Date: 20170207
  Serious: No
  Sender: FDA-Public Use
  Company Number: US-ANIPHARMA-2016-US-003122

PATIENT
  Age: 70 Year
  Sex: Female

DRUGS (3)
  1. REGLAN [Suspect]
     Active Substance: METOCLOPRAMIDE HYDROCHLORIDE
     Dosage: UNKNOWN
     Route: 065
  2. MORPHINE SULFATE. [Suspect]
     Active Substance: MORPHINE SULFATE
     Dosage: UNKNOWN
     Route: 065
  3. MECLIZINE (NON-SPECIFIC) [Suspect]
     Active Substance: MECLIZINE HYDROCHLORIDE
     Dosage: UNKNOWN
     Route: 065
     Dates: end: 201505

REACTIONS (3)
  - Nausea [Unknown]
  - Abdominal discomfort [Unknown]
  - Asthenia [Unknown]
